FAERS Safety Report 4928527-4 (Version None)
Quarter: 2006Q1

REPORT INFORMATION
  Report Type: 
  Country: None (occurrence: None)
  Receive Date: 20060223
  Receipt Date: 20060220
  Transmission Date: 20060701
  Serious: Yes (Other)
  Sender: FDA-Public Use
  Company Number: 200610447GDS

PATIENT
  Age: 56 Year
  Sex: Male

DRUGS (2)
  1. ASPIRIN [Suspect]
     Dosage: ORAL
     Route: 048
  2. TICLOPIDINE HYDROCHLORIDE [Suspect]
     Dosage: ORAL
     Route: 048

REACTIONS (2)
  - HENOCH-SCHONLEIN PURPURA [None]
  - LEUKOCYTOCLASTIC VASCULITIS [None]
